FAERS Safety Report 6410827-2 (Version None)
Quarter: 2009Q4

REPORT INFORMATION
  Report Type: 
  Country: None (occurrence: None)
  Receive Date: 20091022
  Receipt Date: 20091012
  Transmission Date: 20100525
  Serious: Yes (Hospitalization)
  Sender: FDA-Public Use
  Company Number: IL-CELGENEUS-082-50794-09031279

PATIENT
  Sex: Male

DRUGS (5)
  1. VIDAZA [Suspect]
     Route: 058
     Dates: start: 20090215, end: 20090221
  2. VIDAZA [Suspect]
     Route: 058
     Dates: start: 20090322, end: 20090326
  3. VIDAZA [Suspect]
     Route: 058
     Dates: start: 20090419, end: 20090423
  4. VIDAZA [Suspect]
     Route: 058
     Dates: start: 20090517, end: 20090521
  5. VIDAZA [Suspect]
     Route: 058
     Dates: start: 20090614

REACTIONS (2)
  - LYMPHOPENIA [None]
  - PYREXIA [None]
